FAERS Safety Report 6637140-2 (Version None)
Quarter: 2010Q1

REPORT INFORMATION
  Report Type: 
  Country: None (occurrence: None)
  Receive Date: 20100316
  Receipt Date: 20100218
  Transmission Date: 20100710
  Serious: No
  Sender: FDA-Public Use
  Company Number: US-ABBOTT-10P-163-0617522-00

PATIENT
  Sex: Female
  Weight: 93.07 kg

DRUGS (5)
  1. TRILIPIX [Suspect]
     Indication: BLOOD CHOLESTEROL INCREASED
     Dates: start: 20090601, end: 20091223
  2. TRILIPIX [Suspect]
     Dates: start: 20091223
  3. ALOPURINOL [Concomitant]
     Indication: GOUT
     Route: 048
  4. LISINOPRIL [Concomitant]
     Indication: BLOOD PRESSURE
     Dosage: 25/15 MG
  5. ZANTAC [Concomitant]
     Indication: DRUG USE FOR UNKNOWN INDICATION

REACTIONS (2)
  - BLOOD CHOLESTEROL ABNORMAL [None]
  - MUSCLE TIGHTNESS [None]
